FAERS Safety Report 10442548 (Version 1)
Quarter: 2014Q3

REPORT INFORMATION
  Report Type: Spontaneous
  Country: FR (occurrence: FR)
  Receive Date: 20140909
  Receipt Date: 20140909
  Transmission Date: 20150326
  Serious: Yes (Other)
  Sender: FDA-Public Use
  Company Number: FR-PFIZER INC-2014244251

PATIENT
  Age: 77 Year
  Sex: Male
  Weight: 64 kg

DRUGS (7)
  1. TAHOR [Suspect]
     Active Substance: ATORVASTATIN CALCIUM
     Dosage: 10 MG, 1X/DAY
     Route: 048
     Dates: end: 20140805
  2. PANTOPRAZOLE [Concomitant]
     Active Substance: PANTOPRAZOLE SODIUM
     Dosage: 40 MG, DAILY
     Route: 042
     Dates: start: 20140726
  3. VANCOMYCIN [Concomitant]
     Active Substance: VANCOMYCIN
     Dosage: 2 G, DAILY
     Dates: start: 20140727, end: 20140802
  4. ERYTHROMYCIN. [Concomitant]
     Active Substance: ERYTHROMYCIN
     Dosage: 250 MG, 3X/DAY
     Route: 042
  5. LOVENOX [Concomitant]
     Active Substance: ENOXAPARIN SODIUM
     Dosage: UNK
  6. PANTOPRAZOLE [Concomitant]
     Active Substance: PANTOPRAZOLE SODIUM
     Dosage: 20 MG, DAILY
     Route: 042
  7. AUGMENTIN [Concomitant]
     Active Substance: AMOXICILLIN\CLAVULANATE POTASSIUM
     Dosage: 1 G, 4X/DAY
     Dates: end: 20140731

REACTIONS (2)
  - Staphylococcal infection [Unknown]
  - Hypocholesterolaemia [Not Recovered/Not Resolved]

NARRATIVE: CASE EVENT DATE: 201408
